FAERS Safety Report 7479783-2 (Version None)
Quarter: 2011Q2

REPORT INFORMATION
  Report Type: 
  Country: None (occurrence: None)
  Receive Date: 20110513
  Receipt Date: 20110505
  Transmission Date: 20111010
  Serious: Yes (Hospitalization)
  Sender: FDA-Public Use
  Company Number: US-MERCK-0707USA00493

PATIENT
  Age: 47 Year
  Sex: Female

DRUGS (3)
  1. FOSAMAX [Suspect]
     Route: 048
     Dates: start: 20031201, end: 20060818
  2. FOSAMAX [Suspect]
     Route: 048
     Dates: start: 20050301, end: 20060101
  3. FOSAMAX [Suspect]
     Indication: PROPHYLAXIS
     Route: 048
     Dates: start: 20030601, end: 20031201

REACTIONS (11)
  - TOOTH LOSS [None]
  - DEVICE FAILURE [None]
  - FRACTURE [None]
  - UTERINE DISORDER [None]
  - OSTEOPOROSIS [None]
  - UTERINE LEIOMYOMA [None]
  - WEIGHT DECREASED [None]
  - EXOSTOSIS [None]
  - DENTAL CARIES [None]
  - BONE LOSS [None]
  - HAND FRACTURE [None]
